FAERS Safety Report 8521942-1 (Version None)
Quarter: 2012Q3

REPORT INFORMATION
  Report Type: 
  Country: None (occurrence: None)
  Receive Date: 20120719
  Receipt Date: 20120611
  Transmission Date: 20120928
  Serious: No
  Sender: FDA-Public Use
  Company Number: US-BRISTOL-MYERS SQUIBB COMPANY-16676819

PATIENT
  Age: 57 Year
  Sex: Female
  Weight: 77 kg

DRUGS (1)
  1. YERVOY [Suspect]
     Indication: METASTATIC MALIGNANT MELANOMA
     Dosage: FIRST INFUSION:01MAY2012,SECOND INFUSION:9MAY2012,THIRD YERVOY INFUSION ON 14JUN2012

REACTIONS (2)
  - DIARRHOEA [None]
  - HAEMORRHOIDS [None]
